FAERS Safety Report 22805900 (Version 2)
Quarter: 2024Q1

REPORT INFORMATION
  Report Type: Report from Study
  Country: US (occurrence: US)
  Receive Date: 20230809
  Receipt Date: 20240206
  Transmission Date: 20240410
  Serious: Yes (Other)
  Sender: FDA-Public Use
  Company Number: US-IPSEN Group, Research and Development-2023-03725

PATIENT
  Age: 25 Year
  Sex: Male

DRUGS (1)
  1. SOMATULINE DEPOT [Suspect]
     Active Substance: LANREOTIDE ACETATE
     Indication: Acromegaly
     Dosage: 60 MG/0.2 ML, EVERY 4 WEEKS
     Route: 058
     Dates: start: 20210817

REACTIONS (8)
  - Nephrolithiasis [Recovering/Resolving]
  - Pain [Recovered/Resolved]
  - Blood testosterone decreased [Recovering/Resolving]
  - Neoplasm [Unknown]
  - COVID-19 [Recovering/Resolving]
  - Blood glucose abnormal [Recovered/Resolved]
  - Product dose omission issue [Unknown]
  - Insurance issue [Unknown]

NARRATIVE: CASE EVENT DATE: 20230101
